FAERS Safety Report 22133954 (Version 1)
Quarter: 2023Q1

REPORT INFORMATION
  Report Type: Spontaneous
  Country: CN (occurrence: CN)
  Receive Date: 20230324
  Receipt Date: 20230324
  Transmission Date: 20230417
  Serious: Yes (Other)
  Sender: FDA-Public Use
  Company Number: CN-JNJFOC-20230340206

PATIENT
  Age: 45 Year
  Sex: Female

DRUGS (2)
  1. IMBRUVICA [Suspect]
     Active Substance: IBRUTINIB
     Indication: Chronic lymphocytic leukaemia
     Dosage: (2ND REGIMEN), FIRST ADMIN DATE: 04 MAR 2023
     Route: 048
     Dates: end: 20230307
  2. IMBRUVICA [Suspect]
     Active Substance: IBRUTINIB
     Indication: Chronic lymphocytic leukaemia
     Dosage: (1ST REGIMEN), ONCE IN THREE DAYS TO ONCE IN 10 DAYS
     Route: 048

REACTIONS (3)
  - Chronic lymphocytic leukaemia recurrent [Recovering/Resolving]
  - Treatment noncompliance [Unknown]
  - Hypersensitivity [Recovering/Resolving]

NARRATIVE: CASE EVENT DATE: 20221201
